FAERS Safety Report 10455299 (Version 1)
Quarter: 2014Q3

REPORT INFORMATION
  Report Type: Spontaneous
  Country: US (occurrence: US)
  Receive Date: 20140916
  Receipt Date: 20140916
  Transmission Date: 20150326
  Serious: No
  Sender: FDA-Public Use
  Company Number: US-BIOGENIDEC-2014BI094367

PATIENT
  Sex: Female

DRUGS (22)
  1. FLAVOXATE HCL [Concomitant]
  2. FLONASE [Concomitant]
     Active Substance: FLUTICASONE PROPIONATE
  3. TOPAMAX [Concomitant]
     Active Substance: TOPIRAMATE
  4. LORATADINE. [Concomitant]
     Active Substance: LORATADINE
  5. VITAMIN B12 [Concomitant]
     Active Substance: CYANOCOBALAMIN
  6. LACTULOSE. [Concomitant]
     Active Substance: LACTULOSE
  7. ENABLEX [Concomitant]
     Active Substance: DARIFENACIN\DARIFENACIN HYDROBROMIDE
  8. POTASSIUM CHLORIDE ER [Concomitant]
     Active Substance: POTASSIUM CHLORIDE
  9. BACLOFEN. [Concomitant]
     Active Substance: BACLOFEN
  10. XOPENEX HFA [Concomitant]
     Active Substance: LEVALBUTEROL TARTRATE
  11. COUMADIN [Concomitant]
     Active Substance: WARFARIN SODIUM
  12. OXYCODONE HCI [Concomitant]
  13. PROTONIX [Concomitant]
     Active Substance: PANTOPRAZOLE SODIUM
  14. AVONEX [Suspect]
     Active Substance: INTERFERON BETA-1A
     Indication: MULTIPLE SCLEROSIS
     Route: 030
  15. NYSTOP [Concomitant]
     Active Substance: NYSTATIN
  16. MIRALAX [Concomitant]
     Active Substance: POLYETHYLENE GLYCOL 3350
  17. PROVIGIL [Concomitant]
     Active Substance: MODAFINIL
  18. NYSTATIN. [Concomitant]
     Active Substance: NYSTATIN
  19. NORTRIPTYLINE HCL [Concomitant]
     Active Substance: NORTRIPTYLINE HYDROCHLORIDE
  20. CLOTRIMHZOLE [Concomitant]
  21. PYRIDIUM [Concomitant]
     Active Substance: PHENAZOPYRIDINE
  22. LEVOTHYROXINE SODIUM. [Concomitant]
     Active Substance: LEVOTHYROXINE SODIUM

REACTIONS (1)
  - Ammonia increased [Unknown]
